FAERS Safety Report 5742429-5 (Version None)
Quarter: 2008Q2

REPORT INFORMATION
  Report Type: 
  Country: None (occurrence: None)
  Receive Date: 20080514
  Receipt Date: 20080514
  Transmission Date: 20081010
  Serious: No
  Sender: FDA-Public Use
  Company Number: None

PATIENT
  Age: 47 Year
  Sex: Male

DRUGS (1)
  1. AZITHROMYCIN [Suspect]
     Indication: SINUSITIS
     Dosage: 250 MG EVERY DAY PO
     Route: 048
     Dates: start: 20080210, end: 20080211

REACTIONS (3)
  - DYSPNOEA [None]
  - RASH [None]
  - SWELLING FACE [None]
